FAERS Safety Report 6687295-9 (Version None)
Quarter: 2010Q2

REPORT INFORMATION
  Report Type: 
  Country: None (occurrence: None)
  Receive Date: 20100415
  Receipt Date: 20100330
  Transmission Date: 20101027
  Serious: Yes (Hospitalization)
  Sender: FDA-Public Use
  Company Number: 1-22003718

PATIENT
  Age: 74 Year
  Sex: Female

DRUGS (13)
  1. WARFARIN SODIUM [Suspect]
     Indication: THROMBOSIS PROPHYLAXIS
     Dosage: DAILY, ORAL
     Route: 048
     Dates: start: 20091009, end: 20100311
  2. VINPOCETINE [Concomitant]
  3. QUINAPRIL [Concomitant]
  4. ALFACALCIDOL [Concomitant]
  5. CALCIUM CARBONATE WITH COLECALCIFEROL [Concomitant]
  6. OMEGA-3 TRIGLYCERIDES [Concomitant]
  7. AMLODIPINE [Concomitant]
  8. DIOSMIN [Concomitant]
  9. IBANDRONIC ACID [Concomitant]
  10. ATORVASTATIN [Concomitant]
  11. INDAPAMIDE [Concomitant]
  12. KETOPROFEN [Concomitant]
  13. ACETAMINOPHEN [Concomitant]

REACTIONS (6)
  - CONCUSSION [None]
  - HAEMATOMA [None]
  - HEAD INJURY [None]
  - LOSS OF CONSCIOUSNESS [None]
  - RADICULITIS [None]
  - SWELLING FACE [None]
